FAERS Safety Report 15122808 (Version 6)
Quarter: 2020Q3

REPORT INFORMATION
  Report Type: Report from Study
  Country: PL (occurrence: PL)
  Receive Date: 20180709
  Receipt Date: 20190816
  Transmission Date: 20201104
  Serious: Yes (Death, Hospitalization)
  Sender: FDA-Public Use
  Company Number: PL-JNJFOC-20180319115

PATIENT
  Age: 63 Year
  Sex: Female
  Weight: 81 kg

DRUGS (34)
  1. ZOFRAN [Concomitant]
     Active Substance: ONDANSETRON HYDROCHLORIDE
     Route: 065
     Dates: start: 20180220
  2. KETOPROFEN. [Concomitant]
     Active Substance: KETOPROFEN
     Route: 065
     Dates: start: 20180222, end: 20180305
  3. AUGMENTIN [Concomitant]
     Active Substance: AMOXICILLIN\CLAVULANATE POTASSIUM
     Route: 065
     Dates: start: 20180227, end: 20180305
  4. ERDOMED [Concomitant]
     Active Substance: ERDOSTEINE
     Route: 065
     Dates: start: 20180301, end: 20180310
  5. MONTELUKAST [Concomitant]
     Active Substance: MONTELUKAST SODIUM
     Route: 048
     Dates: start: 20180220
  6. SEVREDOL [Concomitant]
     Active Substance: MORPHINE
     Route: 065
     Dates: start: 20180201, end: 20180301
  7. MATRIFEN [Concomitant]
     Active Substance: FENTANYL
     Dosage: ^50^
     Route: 065
     Dates: start: 20180205
  8. CLEXANE [Concomitant]
     Active Substance: ENOXAPARIN SODIUM
     Route: 058
  9. AVAMYS [Concomitant]
     Active Substance: FLUTICASONE FUROATE
     Dosage: ^2^
     Route: 065
     Dates: start: 20180301
  10. ALFADIOL [Concomitant]
     Active Substance: ALFACALCIDOL
     Route: 065
     Dates: start: 201611
  11. HEVIRAN [Concomitant]
     Active Substance: ACYCLOVIR
     Route: 065
     Dates: start: 201611
  12. ZOLEDRONIC ACID [Concomitant]
     Active Substance: ZOLEDRONIC ACID
     Route: 042
     Dates: start: 20180222, end: 20180321
  13. DULSEVIA [Concomitant]
     Dosage: 30?60MG
     Route: 065
     Dates: start: 201702
  14. MILURIT [Concomitant]
     Active Substance: ALLOPURINOL
     Route: 065
  15. PYRALGINUM [Concomitant]
     Active Substance: METAMIZOLE SODIUM
     Dosage: 1 UNK, UNK TO 3 ML, UNK
     Dates: start: 20180220, end: 20180307
  16. DEXAMETHASONE. [Concomitant]
     Active Substance: DEXAMETHASONE
     Indication: PLASMA CELL MYELOMA
     Route: 042
     Dates: start: 20180207, end: 20180321
  17. DEXAMETHASONE. [Concomitant]
     Active Substance: DEXAMETHASONE
     Route: 042
  18. CALPEROS [CALCIUM CARBONATE] [Concomitant]
     Active Substance: CALCIUM CARBONATE
     Route: 065
  19. CLEMASTIN [Concomitant]
     Active Substance: CLEMASTINE
     Route: 048
     Dates: start: 20180220
  20. ALUMINIUM ACETOTARTRATE [Concomitant]
     Active Substance: ALUMINIUM ACETOTARTRATE
     Dates: start: 20180222, end: 20180222
  21. PARACETAMOL [Concomitant]
     Active Substance: ACETAMINOPHEN
     Dates: start: 20180126
  22. DARATUMUMAB [Suspect]
     Active Substance: DARATUMUMAB
     Indication: PLASMA CELL MYELOMA
     Route: 042
     Dates: start: 20180220, end: 20180320
  23. KALIPOZ [Concomitant]
     Active Substance: POTASSIUM CHLORIDE
     Route: 065
  24. SOLU?MEDROL [Concomitant]
     Active Substance: METHYLPREDNISOLONE SODIUM SUCCINATE
     Route: 042
  25. FUROSEMIDE. [Concomitant]
     Active Substance: FUROSEMIDE
     Route: 042
     Dates: start: 20180221, end: 20180313
  26. CAPTOPRIL. [Concomitant]
     Active Substance: CAPTOPRIL
     Route: 065
     Dates: start: 20180222, end: 20180222
  27. LYRICA [Concomitant]
     Active Substance: PREGABALIN
     Dosage: 75?150MG
     Route: 065
     Dates: start: 201708
  28. TRITACE [Concomitant]
     Active Substance: RAMIPRIL
     Route: 065
     Dates: start: 20180222
  29. NACL [Concomitant]
     Active Substance: SODIUM CHLORIDE
     Dosage: 250?500 ML
     Route: 042
     Dates: start: 20180221
  30. HELICID [Concomitant]
     Active Substance: OMEPRAZOLE
     Route: 065
     Dates: start: 201705
  31. CARFILZOMIB [Suspect]
     Active Substance: CARFILZOMIB
     Indication: PLASMA CELL MYELOMA
     Route: 042
     Dates: start: 20180220, end: 20180321
  32. NASIVIN [Concomitant]
     Active Substance: OXYMETAZOLINE
     Route: 065
  33. SALBUTAMOL [Concomitant]
     Active Substance: ALBUTEROL
     Route: 007
     Dates: start: 20180220, end: 20180301
  34. LACIDOFIL [Concomitant]
     Active Substance: LACTOBACILLUS ACIDOPHILUS\LACTOBACILLUS RHAMNOSUS
     Dates: start: 20180122, end: 20180222

REACTIONS (3)
  - Plasma cell myeloma [Fatal]
  - Pneumonia [Recovered/Resolved]
  - Pneumonia [Recovered/Resolved]

NARRATIVE: CASE EVENT DATE: 20180306
